FAERS Safety Report 25897496 (Version 2)
Quarter: 2025Q4

REPORT INFORMATION
  Report Type: Spontaneous
  Country: EG (occurrence: EG)
  Receive Date: 20251008
  Receipt Date: 20251017
  Transmission Date: 20260118
  Serious: Yes (Other)
  Sender: NOVO NORDISK
  Company Number: EG-NOVOPROD-1532637

PATIENT
  Sex: Female

DRUGS (1)
  1. INSULIN HUMAN [Suspect]
     Active Substance: INSULIN HUMAN
     Indication: Type 2 diabetes mellitus
     Dosage: 30 U AT MORNING/10-20 U AT NIGHT (START DATE OF MIXTARD VIALS FROM 17 YEARS )
     Route: 058

REACTIONS (4)
  - Glaucoma [Unknown]
  - Pseudopapilloedema [Unknown]
  - Keratomileusis [Unknown]
  - Hyperglycaemia [Recovered/Resolved]
